FAERS Safety Report 6615472-1 (Version None)
Quarter: 2010Q1

REPORT INFORMATION
  Report Type: 
  Country: None (occurrence: None)
  Receive Date: 20100305
  Receipt Date: 20100302
  Transmission Date: 20100710
  Serious: Yes (Hospitalization)
  Sender: FDA-Public Use
  Company Number: AU-B.I. PHARMACEUTICALS,INC./RIDGEFIELD-2010-AU-00153AU

PATIENT
  Sex: Male

DRUGS (2)
  1. SPIRIVA [Suspect]
     Dates: start: 20100101
  2. MULTIPLE CARDIAC MEDICATIONS (NOT FURTHER SPECIFIED [Concomitant]

REACTIONS (1)
  - URINARY RETENTION [None]
